FAERS Safety Report 8559661-8 (Version None)
Quarter: 2012Q3

REPORT INFORMATION
  Report Type: 
  Country: None (occurrence: None)
  Receive Date: 20120727
  Receipt Date: 20120727
  Transmission Date: 20120928
  Serious: Yes (Hospitalization)
  Sender: FDA-Public Use
  Company Number: None

PATIENT
  Age: 70 Year
  Sex: Male
  Weight: 111.6 kg

DRUGS (8)
  1. HYTRIN [Concomitant]
  2. PRAVASTATIN [Concomitant]
  3. METFORMIN HYDROCHLORIDE [Concomitant]
  4. FISH OIL [Concomitant]
  5. VITAMIN D [Concomitant]
  6. ASPIRIN [Suspect]
     Dosage: 81MG DAILY PO CHRONIC
     Route: 048
  7. PEPCID [Concomitant]
  8. GLUCOTROL [Concomitant]

REACTIONS (5)
  - LUNG CANCER METASTATIC [None]
  - METASTASES TO CENTRAL NERVOUS SYSTEM [None]
  - HEADACHE [None]
  - CEREBRAL HAEMATOMA [None]
  - VISUAL IMPAIRMENT [None]
